FAERS Safety Report 5875750-0 (Version None)
Quarter: 2008Q3

REPORT INFORMATION
  Report Type: 
  Country: None (occurrence: None)
  Receive Date: 20080905
  Receipt Date: 20080822
  Transmission Date: 20090109
  Serious: Yes (Other)
  Sender: FDA-Public Use
  Company Number: SPV1-2008-01866

PATIENT
  Age: 7 Year
  Sex: Male

DRUGS (11)
  1. ELAPRASE [Suspect]
     Indication: MUCOPOLYSACCHARIDOSIS II
     Dosage: 0.5 MG/KG, IV DRIP
     Route: 041
     Dates: start: 20070626, end: 20070101
  2. HYDROCORTISONE [Concomitant]
  3. ALIMEMAZINE (ALIMEMAZINE) [Concomitant]
  4. HYDROXYZINE [Concomitant]
  5. ACETAMINOPHEN [Concomitant]
  6. RISPERDAL [Concomitant]
  7. CHLORPHENIRAMINE MALEATE [Concomitant]
  8. SALBUTAMOL (SALBUTAMOL) [Concomitant]
  9. AMOXICILLIN [Concomitant]
  10. IMODIUM /00384302/ (LOPERAMIDE HYDROCHLORIDE) [Concomitant]
  11. MELATONIN (MELATONIN) [Concomitant]

REACTIONS (6)
  - FEELING HOT [None]
  - FLUSHING [None]
  - INFUSION RELATED REACTION [None]
  - PALLOR [None]
  - PETIT MAL EPILEPSY [None]
  - TACHYPNOEA [None]
